FAERS Safety Report 9233219 (Version 1)
Quarter: 2013Q2

REPORT INFORMATION
  Report Type: Spontaneous
  Country: US (occurrence: None)
  Receive Date: 20130415
  Receipt Date: 20130415
  Transmission Date: 20140414
  Serious: Yes (Hospitalization, Other)
  Sender: FDA-Public Use
  Company Number: None

PATIENT
  Age: 6 Year
  Sex: Male
  Weight: 18.14 kg

DRUGS (2)
  1. NASONEX [Suspect]
     Indication: SEASONAL ALLERGY
     Dosage: 50 MCG ONCE NASAL
     Route: 045
     Dates: start: 20130409, end: 20130409
  2. NASONEX [Suspect]
     Indication: SEASONAL ALLERGY
     Dosage: 50 MCG ONCE NASAL
     Route: 045
     Dates: start: 20130409, end: 20130409

REACTIONS (6)
  - Nasal congestion [None]
  - Dyspnoea [None]
  - Facial pain [None]
  - Swelling face [None]
  - Urticaria [None]
  - Nasal congestion [None]
